FAERS Safety Report 5176962-4 (Version None)
Quarter: 2006Q4

REPORT INFORMATION
  Report Type: 
  Country: None (occurrence: None)
  Receive Date: 20061218
  Receipt Date: 20060721
  Transmission Date: 20070319
  Serious: No
  Sender: FDA-Public Use
  Company Number: US-AMGEN-KDL187378

PATIENT
  Sex: Male

DRUGS (1)
  1. ENBREL [Suspect]
     Indication: RHEUMATOID ARTHRITIS
     Dates: start: 20000801

REACTIONS (1)
  - ACCIDENTAL NEEDLE STICK [None]
